FAERS Safety Report 4746571-7 (Version None)
Quarter: 2005Q3

REPORT INFORMATION
  Report Type: 
  Country: None (occurrence: None)
  Receive Date: 20050816
  Receipt Date: 20050816
  Transmission Date: 20060218
  Serious: Yes (Disabling)
  Sender: FDA-Public Use
  Company Number: None

PATIENT
  Age: 60 Year
  Sex: Female
  Weight: 71.6683 kg

DRUGS (2)
  1. CORDIZONE -1997 [Suspect]
     Dates: start: 20011101, end: 20030101
  2. PREDNISONE [Suspect]

REACTIONS (7)
  - ALOPECIA [None]
  - ARTHROPATHY [None]
  - ASTHENIA [None]
  - MUSCLE ATROPHY [None]
  - MUSCLE DISORDER [None]
  - RASH [None]
  - SWELLING FACE [None]
